FAERS Safety Report 12604000 (Version 1)
Quarter: 2016Q3

REPORT INFORMATION
  Report Type: Spontaneous
  Country: CA (occurrence: CA)
  Receive Date: 20160728
  Receipt Date: 20160728
  Transmission Date: 20161109
  Serious: Yes (Life-Threatening, Hospitalization)
  Sender: FDA-Public Use
  Company Number: CA-FERRINGPH-2015FE00444

PATIENT

DRUGS (3)
  1. PICO-SALAX [Suspect]
     Active Substance: CITRIC ACID MONOHYDRATE\MAGNESIUM OXIDE\SODIUM PICOSULFATE
     Indication: BOWEL PREPARATION
     Dosage: 2 DF, 1 DAY 1, 1 DAY 2
     Route: 048
     Dates: start: 20140330, end: 20140331
  2. LAX-A-DAY (MACROGOL) [Suspect]
     Active Substance: POLYETHYLENE GLYCOLS
     Indication: BOWEL PREPARATION
     Dosage: 119 G (7 DOSES OF 17 G) OVER 24 HR PERIOD
     Route: 048
     Dates: start: 20140330, end: 20140331
  3. DULCOLAX (BISACODYL) [Suspect]
     Active Substance: BISACODYL
     Indication: BOWEL PREPARATION
     Dosage: 2 DF, ONCE/SINGLE
     Route: 048
     Dates: start: 20140330, end: 20140330

REACTIONS (6)
  - Syncope [Unknown]
  - Diarrhoea [Unknown]
  - Foaming at mouth [Unknown]
  - Tremor [Unknown]
  - Muscle spasms [Unknown]
  - Seizure [Unknown]

NARRATIVE: CASE EVENT DATE: 20140331
